FAERS Safety Report 21013948 (Version 12)
Quarter: 2023Q2

REPORT INFORMATION
  Report Type: Spontaneous
  Country: US (occurrence: US)
  Receive Date: 20220627
  Receipt Date: 20230606
  Transmission Date: 20230721
  Serious: Yes (Hospitalization, Other)
  Sender: FDA-Public Use
  Company Number: US-SANOFI-01153967

PATIENT
  Age: 59 Year
  Sex: Female

DRUGS (4)
  1. TOUJEO [Suspect]
     Active Substance: INSULIN GLARGINE
     Indication: Type 2 diabetes mellitus
     Dosage: 20 IU, QD
  2. TOUJEO [Suspect]
     Active Substance: INSULIN GLARGINE
     Dosage: 25 IU, QD
     Route: 058
  3. TOUJEO [Suspect]
     Active Substance: INSULIN GLARGINE
     Dosage: 24 IU
  4. GLIPIZIDE [Suspect]
     Active Substance: GLIPIZIDE
     Dosage: UNK

REACTIONS (17)
  - Critical illness [Unknown]
  - Loss of consciousness [Unknown]
  - Delirium [Unknown]
  - Hallucination [Unknown]
  - Eye disorder [Unknown]
  - Dyspnoea [Unknown]
  - Hyperphagia [Unknown]
  - Cardiac disorder [Unknown]
  - Gastric disorder [Unknown]
  - Myocardial necrosis marker [Unknown]
  - Immune system disorder [Unknown]
  - Uterine leiomyoma [Unknown]
  - Pruritus [Unknown]
  - Drug hypersensitivity [Unknown]
  - Blood glucose decreased [Unknown]
  - Glycosylated haemoglobin increased [Unknown]
  - Incorrect dose administered [Unknown]

NARRATIVE: CASE EVENT DATE: 20220101
